FAERS Safety Report 9828108 (Version 1)
Quarter: 2014Q1

REPORT INFORMATION
  Report Type: Spontaneous
  Country: US (occurrence: US)
  Receive Date: 20140117
  Receipt Date: 20140117
  Transmission Date: 20141002
  Serious: Yes (Hospitalization)
  Sender: FDA-Public Use
  Company Number: US-BMSGILMSD-2010-0033170

PATIENT
  Age: 53 Year
  Sex: Female
  Weight: 74.39 kg

DRUGS (5)
  1. ATRIPLA [Suspect]
     Indication: HIV INFECTION
     Route: 048
     Dates: start: 200908, end: 201008
  2. TRAZODONE [Suspect]
  3. INSULIN [Concomitant]
     Indication: DIABETES MELLITUS
  4. SINGULAIR [Concomitant]
     Indication: CHRONIC OBSTRUCTIVE PULMONARY DISEASE
  5. FERROUS SULFATE [Concomitant]

REACTIONS (1)
  - Renal failure acute [Recovered/Resolved]
